FAERS Safety Report 21057168 (Version 2)
Quarter: 2022Q4

REPORT INFORMATION
  Report Type: Other
  Country: FR (occurrence: FR)
  Receive Date: 20220708
  Receipt Date: 20221128
  Transmission Date: 20230112
  Serious: Yes (Hospitalization)
  Sender: FDA-Public Use
  Company Number: FR-ROCHE-3131677

PATIENT
  Age: 67 Year
  Sex: Female

DRUGS (2)
  1. RITUXIMAB [Suspect]
     Active Substance: RITUXIMAB
     Indication: Multiple sclerosis
     Dosage: SIX CYCLES
     Route: 042
  2. TOZINAMERAN [Concomitant]
     Active Substance: TOZINAMERAN

REACTIONS (2)
  - COVID-19 [Unknown]
  - Off label use [Unknown]
